FAERS Safety Report 9710480 (Version 1)
Quarter: 2013Q4

REPORT INFORMATION
  Report Type: Spontaneous
  Country: US (occurrence: None)
  Receive Date: 20131125
  Receipt Date: 20131125
  Transmission Date: 20140711
  Serious: Yes (Disabling)
  Sender: FDA-Public Use
  Company Number: None

PATIENT
  Sex: 0

DRUGS (10)
  1. CLINDAMYCIN [Suspect]
     Indication: TOOTH INFECTION
     Route: 048
     Dates: start: 20131021, end: 20131027
  2. CLINDAMYCIN [Suspect]
     Indication: PAIN
     Route: 048
     Dates: start: 20131021, end: 20131027
  3. CLINDAMYCIN [Suspect]
     Indication: NO THERAPEUTIC RESPONSE
     Route: 048
     Dates: start: 20131021, end: 20131027
  4. METFORMIN [Concomitant]
  5. JANUVIA [Concomitant]
  6. LISINOPRIL [Concomitant]
  7. SIMVASTATIN [Concomitant]
  8. CALCIUM FUIT-D [Concomitant]
  9. PRILOSEC [Concomitant]
  10. MULTI-VITAMINS [Concomitant]

REACTIONS (3)
  - Diarrhoea [None]
  - Diarrhoea [None]
  - Abnormal faeces [None]
